FAERS Safety Report 14162637 (Version 1)
Quarter: 2017Q4

REPORT INFORMATION
  Report Type: Report from Study
  Country: IE (occurrence: IE)
  Receive Date: 20171106
  Receipt Date: 20171106
  Transmission Date: 20180321
  Serious: Yes (Hospitalization)
  Sender: FDA-Public Use
  Company Number: IE-MYLANLABS-2017M1068670

PATIENT
  Age: 9 Year
  Sex: Male

DRUGS (1)
  1. METHOTREXATE. [Suspect]
     Active Substance: METHOTREXATE
     Indication: DERMATITIS ATOPIC
     Dosage: SINGLE WEEKLY DOSE
     Route: 065

REACTIONS (2)
  - Chest discomfort [Recovered/Resolved]
  - Wheezing [Recovered/Resolved]
